FAERS Safety Report 9399151 (Version 1)
Quarter: 2013Q3

REPORT INFORMATION
  Report Type: Report from Study
  Country: JP (occurrence: JP)
  Receive Date: 20130715
  Receipt Date: 20130715
  Transmission Date: 20140515
  Serious: Yes (Hospitalization)
  Sender: FDA-Public Use
  Company Number: JP-SHIRE-ALL1-2013-04655

PATIENT
  Age: 2 Year
  Sex: Male
  Weight: 14 kg

DRUGS (5)
  1. IDURSULFASE [Suspect]
     Indication: MUCOPOLYSACCHARIDOSIS II
     Dosage: 12 MG, UNKNOWN
     Route: 041
     Dates: start: 20120911
  2. OLOPATADINE HYDROCHLORIDE [Concomitant]
     Indication: RASH
     Dosage: 0.5 G, 1X/DAY:QD
     Route: 048
     Dates: start: 20120926
  3. HYDROXYZINE HYDROCHLORIDE [Concomitant]
     Indication: URTICARIA
     Dosage: 12.5 MG, UNKNOWN
     Route: 041
     Dates: start: 20120911
  4. HYDROXYZINE HYDROCHLORIDE [Concomitant]
     Indication: PREMEDICATION
  5. CARBOCISTEINE [Concomitant]
     Indication: MUCOPOLYSACCHARIDOSIS II
     Dosage: UNK, UNKNOWN
     Route: 048

REACTIONS (3)
  - Pyrexia [Recovered/Resolved]
  - Asthma [Recovered/Resolved]
  - Bronchitis [Recovered/Resolved]
